FAERS Safety Report 4926329-6 (Version None)
Quarter: 2006Q1

REPORT INFORMATION
  Report Type: 
  Country: None (occurrence: None)
  Receive Date: 20060228
  Receipt Date: 20051027
  Transmission Date: 20060701
  Serious: No
  Sender: FDA-Public Use
  Company Number: US-GLAXOSMITHKLINE-A0580349A

PATIENT
  Age: 58 Year
  Sex: Male

DRUGS (2)
  1. LAMICTAL [Suspect]
     Indication: EPILEPSY
     Dosage: 650MG PER DAY
     Route: 048
  2. TOPAMAX [Concomitant]
     Dosage: 500MG PER DAY
     Route: 065

REACTIONS (1)
  - RASH [None]
